FAERS Safety Report 7420052-4 (Version None)
Quarter: 2011Q2

REPORT INFORMATION
  Report Type: 
  Country: None (occurrence: None)
  Receive Date: 20110418
  Receipt Date: 20110407
  Transmission Date: 20111010
  Serious: No
  Sender: FDA-Public Use
  Company Number: US-BIOGENIDEC-2011BI013349

PATIENT
  Sex: Female

DRUGS (3)
  1. MEDICATION (NOS) [Concomitant]
     Dates: end: 20110201
  2. TYSABRI [Suspect]
     Indication: MULTIPLE SCLEROSIS
     Route: 042
     Dates: start: 20101111
  3. TYSABRI [Suspect]
     Route: 042
     Dates: start: 20080228, end: 20080527

REACTIONS (3)
  - MUSCULOSKELETAL DISORDER [None]
  - COORDINATION ABNORMAL [None]
  - RASH PRURITIC [None]
